FAERS Safety Report 5292397-8 (Version None)
Quarter: 2007Q2

REPORT INFORMATION
  Report Type: 
  Country: None (occurrence: None)
  Receive Date: 20070410
  Receipt Date: 20070326
  Transmission Date: 20071010
  Serious: Yes (Hospitalization, Other)
  Sender: FDA-Public Use
  Company Number: US-PFIZER INC-2006099188

PATIENT
  Sex: Male
  Weight: 90.7 kg

DRUGS (1)
  1. BEXTRA [Suspect]
     Indication: INTERVERTEBRAL DISC PROTRUSION
     Dosage: DAILY DOSE:20MG

REACTIONS (1)
  - ACUTE MYOCARDIAL INFARCTION [None]
